FAERS Safety Report 8616387-X (Version None)
Quarter: 2012Q3

REPORT INFORMATION
  Report Type: 
  Country: None (occurrence: None)
  Receive Date: 20120815
  Receipt Date: 20120815
  Transmission Date: 20120928
  Serious: No
  Sender: FDA-Public Use
  Company Number: None

PATIENT

DRUGS (1)
  1. MORPHINE SULFATE [Suspect]
     Dosage: 15 MG PO
     Route: 048
     Dates: start: 20120808, end: 20120813

REACTIONS (1)
  - GASTRIC DISORDER [None]
